FAERS Safety Report 5031351-8 (Version None)
Quarter: 2006Q2

REPORT INFORMATION
  Report Type: 
  Country: None (occurrence: None)
  Receive Date: 20060615
  Receipt Date: 20060531
  Transmission Date: 20061013
  Serious: Yes (Hospitalization)
  Sender: FDA-Public Use
  Company Number: GB200605000545

PATIENT
  Age: 44 Year
  Sex: Male

DRUGS (11)
  1. FORTEO [Suspect]
     Indication: OSTEOPOROSIS
     Dosage: 20 UG, DAILY 1/D), SUBCUTANEOUS
     Route: 058
     Dates: start: 20060424, end: 20060521
  2. FORTEO PEN (FORTEO PEN) PEN, DISPOSABLE [Concomitant]
  3. FLUTICASONE PROPIONATE W/SALMETEROL (FLUTICASONE PROPIONATE, SALMETERO [Concomitant]
  4. SALBUTAMOL (SALBUTAMOL) [Concomitant]
  5. NILVADIPINE (NILVADIPINE) [Concomitant]
  6. ACYCLOVIR [Concomitant]
  7. OMEPRAZOLE [Concomitant]
  8. INDAPAMIDE [Concomitant]
  9. IRBESARTAN [Concomitant]
  10. AMLODIPINE [Concomitant]
  11. SIMVASTATIN [Concomitant]

REACTIONS (2)
  - DYSPNOEA [None]
  - LOWER RESPIRATORY TRACT INFECTION [None]
